FAERS Safety Report 20709534 (Version 5)
Quarter: 2022Q3

REPORT INFORMATION
  Report Type: Other
  Country: KR (occurrence: None)
  Receive Date: 20220414
  Receipt Date: 20220920
  Transmission Date: 20221026
  Serious: Yes (Hospitalization, Other)
  Sender: FDA-Public Use
  Company Number: KR-ROCHE-3068783

PATIENT
  Age: 80 Year
  Sex: Male
  Weight: 60.5 kg

DRUGS (12)
  1. ATEZOLIZUMAB [Suspect]
     Active Substance: ATEZOLIZUMAB
     Indication: Small cell lung cancer extensive stage
     Route: 041
     Dates: start: 20220316
  2. ETOPOSIDE [Suspect]
     Active Substance: ETOPOSIDE
     Indication: Small cell lung cancer extensive stage
     Route: 042
     Dates: start: 20220316
  3. CARBOPLATIN [Suspect]
     Active Substance: CARBOPLATIN
     Indication: Small cell lung cancer extensive stage
     Route: 042
     Dates: start: 20220316
  4. TACOPEN [Concomitant]
     Indication: Cancer pain
     Route: 048
     Dates: start: 20220218
  5. PERKIN 25-100 [Concomitant]
     Indication: Parkinson^s disease
     Route: 048
  6. HERBALS [Concomitant]
     Active Substance: HERBALS
     Route: 048
     Dates: start: 20220215
  7. HUMALOG [Concomitant]
     Active Substance: INSULIN LISPRO
     Indication: Diabetes mellitus
     Route: 058
  8. ADALAT [Concomitant]
     Active Substance: NIFEDIPINE
     Indication: Hypertension
     Route: 048
  9. KANARB [Concomitant]
     Indication: Hypertension
     Route: 048
     Dates: start: 20220405, end: 20220405
  10. FELODIPINE [Concomitant]
     Active Substance: FELODIPINE
     Indication: Hypertension
     Route: 048
     Dates: start: 20220405, end: 20220405
  11. CODAEWON S [Concomitant]
     Dates: start: 20220218
  12. QUETIAPINE FUMARATE [Concomitant]
     Active Substance: QUETIAPINE FUMARATE
     Indication: Delirium
     Dates: start: 20220418

REACTIONS (3)
  - Gastric ulcer [Recovered/Resolved]
  - Delirium [Not Recovered/Not Resolved]
  - Hypoglycaemia [Recovered/Resolved]

NARRATIVE: CASE EVENT DATE: 20220403
